FAERS Safety Report 8995913 (Version 2)
Quarter: 2013Q1

REPORT INFORMATION
  Report Type: Spontaneous
  Country: US (occurrence: US)
  Receive Date: 20130103
  Receipt Date: 20130116
  Transmission Date: 20140127
  Serious: Yes (Hospitalization, Other)
  Sender: FDA-Public Use
  Company Number: US-ELI_LILLY_AND_COMPANY-US201301000090

PATIENT
  Sex: Female

DRUGS (7)
  1. HUMATROPE [Suspect]
     Indication: HYPOPITUITARISM
     Dosage: 0.3 MG, EACH EVENING
  2. HUMATROPE [Suspect]
     Dosage: 0.2 MG, EACH EVENING
  3. PLAVIX [Concomitant]
     Indication: ARTERIAL DISORDER
  4. ASPIRIN [Concomitant]
     Indication: ARTERIAL DISORDER
     Dosage: 325 MG, UNK
  5. METFORMIN [Concomitant]
  6. PIOGLITAZONE [Concomitant]
  7. GLIPIRIDE [Concomitant]

REACTIONS (12)
  - Arterial disorder [Unknown]
  - Eye haemorrhage [Unknown]
  - Infection [Unknown]
  - Visual impairment [Unknown]
  - Incorrect dose administered [Unknown]
  - Blood glucose increased [Unknown]
  - Expired drug administered [Unknown]
  - Blood glucose decreased [Unknown]
  - Skin ulcer [Unknown]
  - Cataract [Unknown]
  - Memory impairment [Not Recovered/Not Resolved]
  - Incorrect storage of drug [Unknown]
